FAERS Safety Report 7615713-8 (Version None)
Quarter: 2011Q3

REPORT INFORMATION
  Report Type: 
  Country: None (occurrence: None)
  Receive Date: 20110715
  Receipt Date: 20110715
  Transmission Date: 20111222
  Serious: Yes (Other)
  Sender: FDA-Public Use
  Company Number: None

PATIENT
  Age: 67 Year
  Sex: Female
  Weight: 62.5964 kg

DRUGS (1)
  1. MESALAMINE [Suspect]
     Indication: COLITIS
     Dosage: INCREASED TO 4 = 1.5 ONCE PO
     Route: 048
     Dates: start: 20101201, end: 20110627

REACTIONS (21)
  - CHEST PAIN [None]
  - SNEEZING [None]
  - CHEST DISCOMFORT [None]
  - GAIT DISTURBANCE [None]
  - PAIN [None]
  - DECREASED APPETITE [None]
  - ACTIVITIES OF DAILY LIVING IMPAIRED [None]
  - ERUCTATION [None]
  - EAR PAIN [None]
  - COUGH [None]
  - HAEMORRHAGE [None]
  - PAINFUL RESPIRATION [None]
  - BACK PAIN [None]
  - NECK PAIN [None]
  - BODY TEMPERATURE INCREASED [None]
  - OESOPHAGEAL SPASM [None]
  - NAIL DISCOLOURATION [None]
  - HEADACHE [None]
  - REGURGITATION [None]
  - OESOPHAGEAL PAIN [None]
  - GASTROOESOPHAGEAL REFLUX DISEASE [None]
